FAERS Safety Report 9990772 (Version 1)
Quarter: 2014Q1

REPORT INFORMATION
  Report Type: Report from Study
  Country: US (occurrence: US)
  Receive Date: 20140310
  Receipt Date: 20140310
  Transmission Date: 20141002
  Serious: No
  Sender: FDA-Public Use
  Company Number: US-ABBVIE-13P-163-1135108-00

PATIENT
  Sex: Female

DRUGS (5)
  1. HUMIRA [Suspect]
     Indication: PSORIASIS
     Dates: start: 20130305, end: 20130619
  2. FENTANYL [Concomitant]
     Indication: PAIN
     Dosage: 50 MCG PATCH EVERY 48 HOURS
  3. VALTREX [Concomitant]
     Indication: GENITAL HERPES
     Dosage: 1 GM DAILY
  4. LYRICA [Concomitant]
     Indication: NEUROPATHY PERIPHERAL
     Dosage: 75 MG DAILY
  5. AMITRIPTYLINE [Concomitant]
     Indication: INSOMNIA
     Dosage: 10 MG EVERY EVENING

REACTIONS (1)
  - Psoriasis [Not Recovered/Not Resolved]
